FAERS Safety Report 25649321 (Version 1)
Quarter: 2025Q3

REPORT INFORMATION
  Report Type: Spontaneous
  Country: US (occurrence: US)
  Receive Date: 20250806
  Receipt Date: 20250806
  Transmission Date: 20251021
  Serious: Yes (Other)
  Sender: KRAMER LABORATORIES
  Company Number: US-KRAMERLABS-2025-US-036532

PATIENT
  Age: 61 Year
  Sex: Female

DRUGS (7)
  1. FUNGI NAIL TOE AND FOOT (TOLNAFTATE) [Suspect]
     Active Substance: TOLNAFTATE
     Indication: Onychomycosis
     Route: 061
     Dates: start: 20250601, end: 20250731
  2. OCREVUS [Concomitant]
     Active Substance: OCRELIZUMAB
  3. AMPYRA [Concomitant]
     Active Substance: DALFAMPRIDINE
  4. BACLOFEN [Concomitant]
     Active Substance: BACLOFEN
  5. SIMVASTATIN [Concomitant]
     Active Substance: SIMVASTATIN
  6. VITAMINS [Concomitant]
     Active Substance: VITAMINS
  7. VITAMIN D [Concomitant]
     Active Substance: VITAMIN D NOS

REACTIONS (3)
  - Product administered at inappropriate site [Recovered/Resolved]
  - Pyrexia [Unknown]
  - Pneumonia [Unknown]

NARRATIVE: CASE EVENT DATE: 20250601
